FAERS Safety Report 11088947 (Version 1)
Quarter: 2015Q2

REPORT INFORMATION
  Report Type: Spontaneous
  Country: US (occurrence: US)
  Receive Date: 20150504
  Receipt Date: 20150504
  Transmission Date: 20150821
  Serious: Yes (Other)
  Sender: FDA-Public Use
  Company Number: US-ALLERGAN-1508230US

PATIENT
  Sex: Female

DRUGS (2)
  1. RESTASIS [Suspect]
     Active Substance: CYCLOSPORINE
     Dosage: UNK
     Route: 047
     Dates: start: 201412
  2. RESTASIS [Suspect]
     Active Substance: CYCLOSPORINE
     Indication: BASEDOW^S DISEASE

REACTIONS (3)
  - Periorbital contusion [Unknown]
  - Corneal transplant [Unknown]
  - Off label use [Unknown]

NARRATIVE: CASE EVENT DATE: 2014
